FAERS Safety Report 16842926 (Version 1)
Quarter: 2019Q3

REPORT INFORMATION
  Report Type: Spontaneous
  Country: US (occurrence: US)
  Receive Date: 20190802
  Receipt Date: 20190802
  Transmission Date: 20191005
  Serious: No
  Sender: FDA-Public Use
  Company Number: None

PATIENT
  Age: 46 Year
  Sex: Female

DRUGS (1)
  1. XELJANZ XR [Suspect]
     Active Substance: TOFACITINIB CITRATE
     Indication: RHEUMATOID ARTHRITIS
     Route: 048
     Dates: start: 20190522

REACTIONS (4)
  - Systemic lupus erythematosus [None]
  - Blood pressure measurement [None]
  - Dyspepsia [None]
  - Dizziness [None]

NARRATIVE: CASE EVENT DATE: 201906
